FAERS Safety Report 20680780 (Version 2)
Quarter: 2023Q2

REPORT INFORMATION
  Report Type: Spontaneous
  Country: US (occurrence: US)
  Receive Date: 20220406
  Receipt Date: 20230602
  Transmission Date: 20230721
  Serious: Yes (Other)
  Sender: FDA-Public Use
  Company Number: US-GILEAD-2022-0575635

PATIENT
  Age: 12 Year
  Sex: Female

DRUGS (12)
  1. VEKLURY [Suspect]
     Active Substance: REMDESIVIR
     Indication: COVID-19
     Dosage: UNK
     Route: 065
  2. SODIUM CHLORIDE [Concomitant]
     Active Substance: SODIUM CHLORIDE
  3. SODIUM BICARBONATE [Concomitant]
     Active Substance: SODIUM BICARBONATE
  4. POTASSIUM CHLORIDE [Concomitant]
     Active Substance: POTASSIUM CHLORIDE
  5. OXYGEN [Concomitant]
     Active Substance: OXYGEN
  6. DEXAMETHASONE [Concomitant]
     Active Substance: DEXAMETHASONE
  7. HEPARIN [Concomitant]
     Active Substance: HEPARIN SODIUM
  8. INSULIN NOS [Concomitant]
     Active Substance: INSULIN NOS
  9. CLINDAMYCIN [Concomitant]
     Active Substance: CLINDAMYCIN
  10. IMMUNE GLOBULIN NOS [Concomitant]
     Active Substance: IMMUNE GLOBULIN NOS
  11. METHYLPREDNISOLONE [Concomitant]
     Active Substance: METHYLPREDNISOLONE
  12. ANAKINRA [Concomitant]
     Active Substance: ANAKINRA

REACTIONS (1)
  - Renal impairment [Not Recovered/Not Resolved]
